FAERS Safety Report 7085237-8 (Version None)
Quarter: 2010Q4

REPORT INFORMATION
  Report Type: 
  Country: None (occurrence: None)
  Receive Date: 20101105
  Receipt Date: 20101027
  Transmission Date: 20110411
  Serious: Yes (Death, Hospitalization)
  Sender: FDA-Public Use
  Company Number: US-AMGEN-US300765

PATIENT
  Sex: Male

DRUGS (9)
  1. PANITUMUMAB [Suspect]
     Indication: COLORECTAL CANCER
     Dosage: 500 MG, Q2WK
     Route: 042
     Dates: start: 20080729, end: 20080729
  2. IRINOTECAN HCL [Suspect]
     Dosage: UNK UNK, UNK
     Route: 065
  3. FLUOROURACIL [Suspect]
     Dosage: UNK UNK, UNK
     Route: 065
  4. FOLINIC ACID [Suspect]
     Dosage: UNK UNK, UNK
     Route: 065
  5. TRIAMTERENE AND HYDROCHLOROTHIAZIDE [Concomitant]
     Dosage: 37.5 MG, QD
  6. AMITRIPTYLINE HYDROCHLORIDE [Concomitant]
     Dosage: 10 MG, QD
  7. LEVOFLOXACIN [Concomitant]
     Dosage: 500 MG, QD
     Dates: start: 20080808
  8. TUMS [Concomitant]
     Dosage: UNK UNK, QD
  9. MULTI-VITAMINS [Concomitant]
     Dosage: UNK UNK, QD

REACTIONS (7)
  - CHEST X-RAY ABNORMAL [None]
  - COLON CANCER [None]
  - ELECTROCARDIOGRAM QRS COMPLEX ABNORMAL [None]
  - MALIGNANT NEOPLASM PROGRESSION [None]
  - ORAL CANDIDIASIS [None]
  - PANCYTOPENIA [None]
  - RENAL FAILURE ACUTE [None]
